FAERS Safety Report 8499236-2 (Version None)
Quarter: 2012Q3

REPORT INFORMATION
  Report Type: 
  Country: None (occurrence: None)
  Receive Date: 20120710
  Receipt Date: 20120702
  Transmission Date: 20120928
  Serious: Yes (Other)
  Sender: FDA-Public Use
  Company Number: PHHY2012VE058500

PATIENT
  Sex: Female

DRUGS (9)
  1. ZOLEDRONOC ACID [Suspect]
     Dosage: 5 MG/YEAR
     Route: 042
     Dates: start: 20110601
  2. EXPECTORANTS [Concomitant]
     Dosage: UNK UKN, UNK
  3. ZOLEDRONOC ACID [Suspect]
     Dosage: 5 MG/YEAR
     Route: 042
     Dates: start: 20120215
  4. PLAVIX [Concomitant]
     Indication: THROMBOSIS
     Dosage: 75 MG, UNK
     Route: 048
     Dates: start: 20060101
  5. ALTACE [Concomitant]
     Indication: HYPERTENSION
     Dosage: 5 MG, UNK
     Route: 048
     Dates: start: 20090101
  6. GLUCOFAGE [Concomitant]
     Indication: HYPERGLYCAEMIA
     Dosage: 500 MG, UNK
     Route: 048
     Dates: start: 20120601
  7. FLU SYRUP [Concomitant]
     Dosage: UNK UKN, UNK
  8. ANTIBIOTICS [Concomitant]
     Dosage: UNK UKN, UNK
  9. ZOLEDRONOC ACID [Suspect]
     Indication: OSTEOPOROSIS
     Dosage: 5 MG/YEAR
     Route: 042
     Dates: start: 20100518

REACTIONS (7)
  - HEADACHE [None]
  - BLOOD PRESSURE INCREASED [None]
  - CHEST PAIN [None]
  - RESPIRATORY DISTRESS [None]
  - INFLUENZA [None]
  - DIABETES MELLITUS [None]
  - DIZZINESS [None]
